FAERS Safety Report 6397629-0 (Version None)
Quarter: 2009Q4

REPORT INFORMATION
  Report Type: 
  Country: None (occurrence: None)
  Receive Date: 20091012
  Receipt Date: 20091002
  Transmission Date: 20100525
  Serious: Yes (Other)
  Sender: FDA-Public Use
  Company Number: PHHY2009BR42724

PATIENT
  Age: 49 Year
  Sex: Female
  Weight: 68 kg

DRUGS (6)
  1. FORASEQ [Suspect]
     Indication: ASTHMA
     Dosage: TWICE A DAY (IN THE MORNING AND AT NIGHT)
  2. RIVOTRIL [Concomitant]
     Indication: SLEEP DISORDER
     Dosage: 1 TABLET AT NIGHT
  3. OMEPRAZOLE [Concomitant]
     Indication: ULCER
     Dosage: 1 TABLET IN THE MORNING
     Route: 048
  4. OMEPRAZOLE [Concomitant]
     Indication: GASTRITIS
  5. COMBIVENT [Concomitant]
     Indication: ASTHMA
     Dosage: TWICE A DAY (IN THE MORNING AND AT NIGHT)
  6. BROMAZEPAN [Concomitant]
     Dosage: 20 MG, 1 OR 2 TABLETS DAILY

REACTIONS (9)
  - CARDIOMEGALY [None]
  - CRYING [None]
  - DEPRESSION [None]
  - DRUG ADMINISTRATION ERROR [None]
  - FEELING ABNORMAL [None]
  - HEART RATE INCREASED [None]
  - MEMORY IMPAIRMENT [None]
  - SOMNOLENCE [None]
  - THROAT IRRITATION [None]
